FAERS Safety Report 4508944-7 (Version None)
Quarter: 2004Q4

REPORT INFORMATION
  Report Type: 
  Country: None (occurrence: None)
  Receive Date: 20041123
  Receipt Date: 20041115
  Transmission Date: 20050328
  Serious: Yes (Other)
  Sender: FDA-Public Use
  Company Number: GB-GLAXOSMITHKLINE-B0356914A

PATIENT
  Age: 62 Year
  Sex: Female
  Weight: 83 kg

DRUGS (5)
  1. COMBIVIR [Suspect]
     Indication: HIV INFECTION
     Dosage: 1UNIT TWICE PER DAY
     Route: 048
  2. COTRIM [Suspect]
     Indication: HIV INFECTION
     Dosage: 480MG PER DAY
     Route: 048
  3. NEVIRAPINE [Suspect]
     Indication: HIV INFECTION
     Dosage: 200MG TWICE PER DAY
     Route: 048
  4. LANSOPRAZOLE [Suspect]
     Indication: HIV INFECTION
     Dosage: 30MG PER DAY
     Route: 048
  5. INFLUENZA VACCINE [Suspect]
     Indication: PROPHYLAXIS
     Dates: start: 20041101, end: 20041101

REACTIONS (2)
  - DRUG INTERACTION [None]
  - INJECTION SITE SWELLING [None]
